FAERS Safety Report 6310797-1 (Version None)
Quarter: 2009Q3

REPORT INFORMATION
  Report Type: 
  Country: None (occurrence: None)
  Receive Date: 20090812
  Receipt Date: 20090806
  Transmission Date: 20100115
  Serious: Yes (Disabling)
  Sender: FDA-Public Use
  Company Number: 2009008116

PATIENT
  Age: 58 Year
  Sex: Male
  Weight: 97.0698 kg

DRUGS (1)
  1. TREANDA [Suspect]
     Indication: CHRONIC LYMPHOCYTIC LEUKAEMIA
     Dosage: (200 MA.DAY 1 + 2: EVERY 28 DAYS), INTRAVENNUS
     Route: 042
     Dates: start: 20090401, end: 20090630

REACTIONS (2)
  - OEDEMA [None]
  - RASH MACULAR [None]
